FAERS Safety Report 14261319 (Version 1)
Quarter: 2017Q4

REPORT INFORMATION
  Report Type: Report from Study
  Country: AR (occurrence: AR)
  Receive Date: 20171208
  Receipt Date: 20171208
  Transmission Date: 20180321
  Serious: Yes (Hospitalization, Other)
  Sender: FDA-Public Use
  Company Number: PHHY2017AR180476

PATIENT
  Sex: Female

DRUGS (2)
  1. DIOVAN [Suspect]
     Active Substance: VALSARTAN
     Indication: HYPERTENSION
     Dosage: 1 DF, AT 4 IN THE AFTERNOON
     Route: 065
  2. DIOVAN D [Suspect]
     Active Substance: HYDROCHLOROTHIAZIDE\VALSARTAN
     Indication: HYPERTENSION
     Dosage: 1 DF (HYDROCHLOROTHIAZIDE 12.5, VALSARTAN 160, UNITS NOT PROVIDED), AT MORNING
     Route: 065

REACTIONS (4)
  - Hypokinesia [Not Recovered/Not Resolved]
  - Wound secretion [Recovering/Resolving]
  - Wound infection bacterial [Recovered/Resolved]
  - Gait disturbance [Not Recovered/Not Resolved]
